FAERS Safety Report 8160521-5 (Version None)
Quarter: 2012Q1

REPORT INFORMATION
  Report Type: 
  Country: None (occurrence: None)
  Receive Date: 20120223
  Receipt Date: 20120215
  Transmission Date: 20120608
  Serious: Yes (Death, Life-Threatening, Hospitalization, Other)
  Sender: FDA-Public Use
  Company Number: ES-CELGENEUS-144-50794-11122990

PATIENT
  Sex: Male
  Weight: 61 kg

DRUGS (12)
  1. ALLOPURINOL [Concomitant]
     Dosage: 300 DOSAGE FORMS
     Route: 065
     Dates: start: 20071205, end: 20071208
  2. FLURAZEPAM [Concomitant]
     Indication: INSOMNIA
     Dosage: 30 MILLIGRAM
     Route: 065
     Dates: start: 20071227, end: 20080108
  3. ASPIRIN [Concomitant]
     Indication: THROMBOSIS PROPHYLAXIS
     Dosage: 100 MILLIGRAM
     Route: 065
     Dates: start: 20071018, end: 20071025
  4. IBUPROFEN [Concomitant]
     Indication: ARTHRALGIA
     Route: 065
     Dates: start: 20070913, end: 20070922
  5. ACETAMINOPHEN [Concomitant]
     Indication: ARTHRALGIA
     Dosage: 2600 MILLIGRAM
     Route: 065
     Dates: start: 20071011, end: 20071025
  6. RABEPRAZOLE SODIUM [Concomitant]
     Route: 065
  7. PREDNISONE [Concomitant]
     Indication: ARTHRALGIA
     Dosage: 5 DOSAGE FORMS
     Route: 065
     Dates: start: 20071105, end: 20080108
  8. METOCLOPRAMIDE [Concomitant]
     Indication: VOMITING
     Dosage: 30 MILLIGRAM
     Route: 065
     Dates: start: 20071027, end: 20071105
  9. VIDAZA [Suspect]
     Dosage: 75 MILLIGRAM/SQ. METER
     Route: 041
     Dates: start: 20071211, end: 20071219
  10. RABEPRAZOLE SODIUM [Concomitant]
     Indication: GASTRITIS PROPHYLAXIS
     Dosage: 20 DOSAGE FORMS
     Route: 065
     Dates: start: 20070913
  11. FENTANYL [Concomitant]
     Indication: ARTHRALGIA
     Dosage: 900 MICROGRAM
     Route: 065
     Dates: start: 20071105, end: 20071115
  12. DIAZEPAM [Concomitant]
     Route: 065
     Dates: start: 20070927, end: 20071011

REACTIONS (3)
  - GASTROINTESTINAL HAEMORRHAGE [None]
  - ESCHERICHIA SEPSIS [None]
  - NEUTROPENIA [None]
